FAERS Safety Report 8931173 (Version 2)
Quarter: 2012Q4

REPORT INFORMATION
  Report Type: 
  Country: US (occurrence: US)
  Receive Date: 20121121
  Receipt Date: 20121212
  Transmission Date: 20130627
  Serious: Yes (Death, Other)
  Sender: FDA-Public Use
  Company Number: US-ASTELLAS-1092782

PATIENT
  Sex: Male

DRUGS (2)
  1. TARCEVA [Suspect]
     Indication: MALIGNANT RESPIRATORY TRACT NEOPLASM
     Route: 065
     Dates: start: 20050904, end: 20050907
  2. TARCEVA [Suspect]
     Indication: LUNG NEOPLASM MALIGNANT
     Route: 065
     Dates: start: 20050917

REACTIONS (6)
  - Death [Fatal]
  - Atrial fibrillation [Unknown]
  - Chronic obstructive pulmonary disease [Unknown]
  - Pneumonia [Unknown]
  - White blood cell count increased [Unknown]
  - Rash [Unknown]
